FAERS Safety Report 23887501 (Version 1)
Quarter: 2024Q2

REPORT INFORMATION
  Report Type: Spontaneous
  Country: US (occurrence: US)
  Receive Date: 20240523
  Receipt Date: 20240523
  Transmission Date: 20240715
  Serious: Yes (Hospitalization, Other)
  Sender: FDA-Public Use
  Company Number: US-BRISTOL-MYERS SQUIBB COMPANY-2024-078323

PATIENT
  Age: 70 Year
  Sex: Female

DRUGS (1)
  1. REVLIMID [Suspect]
     Active Substance: LENALIDOMIDE
     Indication: Product used for unknown indication
     Dosage: 1 TIME A DAY FOR 21 DAYS ON AND 7DAYS OFF
     Route: 048
     Dates: start: 202110

REACTIONS (3)
  - Cardiac arrest [Unknown]
  - Pulmonary oedema [Unknown]
  - Loss of consciousness [Unknown]
